FAERS Safety Report 5875756-1 (Version None)
Quarter: 2008Q3

REPORT INFORMATION
  Report Type: 
  Country: None (occurrence: None)
  Receive Date: 20080905
  Receipt Date: 20080828
  Transmission Date: 20090109
  Serious: Yes (Hospitalization)
  Sender: FDA-Public Use
  Company Number: GXKR2008DK08236

PATIENT
  Age: 34 Year
  Sex: Female
  Weight: 65.5 kg

DRUGS (11)
  1. ONDANSETRON [Suspect]
     Dosage: ORAL
     Route: 048
  2. NOXAFIL [Suspect]
     Indication: HEPATOSPLENIC CANDIDIASIS
     Dosage: 800 MG/DAY, ORAL
     Route: 048
     Dates: start: 20071019, end: 20080125
  3. PANTOPRAZOLE SODIUM [Suspect]
     Dosage: ORAL
     Route: 048
  4. VOGALENE (METOPIMAZINE) [Suspect]
     Dosage: ORAL
     Route: 048
  5. POTASSIUM CHLORIDE [Suspect]
     Dosage: ORAL
     Route: 048
  6. DEXAMETHASONE TAB [Suspect]
     Dosage: ORAL
     Route: 048
  7. ACYCLOVIR [Suspect]
     Dosage: ORAL
     Route: 048
  8. ALLOPURINOL [Suspect]
     Dosage: ORAL
     Route: 048
  9. CYTARABINE [Suspect]
     Dosage: ORAL
     Route: 048
  10. ETOPOSIDE [Suspect]
     Dosage: ORAL
     Route: 048
  11. ANTIFUNGALS (NO INGREDIENTS/SUBSTANCES) [Suspect]

REACTIONS (3)
  - DRUG INTERACTION [None]
  - HEPATOSPLENIC CANDIDIASIS [None]
  - SINOATRIAL BLOCK [None]
